FAERS Safety Report 25623653 (Version 2)
Quarter: 2025Q3

REPORT INFORMATION
  Report Type: Spontaneous
  Country: US (occurrence: US)
  Receive Date: 20250730
  Receipt Date: 20250814
  Transmission Date: 20251021
  Serious: Yes (Other)
  Sender: SANOFI AVENTIS
  Company Number: US-SANOFI-02600520

PATIENT
  Age: 71 Year
  Sex: Male

DRUGS (1)
  1. MULTAQ [Suspect]
     Active Substance: DRONEDARONE
     Indication: Atrial fibrillation
     Route: 065

REACTIONS (3)
  - Foreign body in throat [Unknown]
  - Wrong technique in product usage process [Unknown]
  - Product use complaint [Unknown]
